FAERS Safety Report 10755081 (Version 1)
Quarter: 2015Q1

REPORT INFORMATION
  Report Type: Spontaneous
  Country: US (occurrence: None)
  Receive Date: 20150130
  Receipt Date: 20150130
  Transmission Date: 20150721
  Serious: No
  Sender: FDA-Public Use
  Company Number: None

PATIENT
  Age: 28 Year
  Sex: Female

DRUGS (1)
  1. CLINIQUE ACNE SOLUTION [Suspect]
     Active Substance: SALICYLIC ACID
     Indication: ACNE
     Dates: start: 20150128, end: 20150128

REACTIONS (5)
  - Dry skin [None]
  - Burning sensation [None]
  - Eye swelling [None]
  - Erythema [None]
  - Swelling face [None]

NARRATIVE: CASE EVENT DATE: 20150128
